FAERS Safety Report 9713675 (Version 1)
Quarter: 2013Q4

REPORT INFORMATION
  Report Type: Spontaneous
  Country: US (occurrence: None)
  Receive Date: 20131125
  Receipt Date: 20131125
  Transmission Date: 20140711
  Serious: Yes (Life-Threatening)
  Sender: FDA-Public Use
  Company Number: None

PATIENT
  Age: 68 Year
  Sex: Male
  Weight: 132.9 kg

DRUGS (1)
  1. LEVETIRACETAM [Suspect]
     Indication: CONVULSION
     Dosage: TAKE ONE TABLET BY MOUTH TWICE DAILY FOR SEIZURES
     Route: 048
     Dates: start: 20131021, end: 20131028

REACTIONS (4)
  - Angioedema [None]
  - Obstructive airways disorder [None]
  - Respiratory arrest [None]
  - Blood test abnormal [None]
